FAERS Safety Report 10907830 (Version 1)
Quarter: 2015Q1

REPORT INFORMATION
  Report Type: Other
  Country: FR (occurrence: FR)
  Receive Date: 20150312
  Receipt Date: 20150312
  Transmission Date: 20150721
  Serious: Yes (Hospitalization)
  Sender: FDA-Public Use
  Company Number: FR-ASTELLAS-2015EU000326

PATIENT
  Age: 43 Year
  Sex: Female

DRUGS (8)
  1. VESICARE [Suspect]
     Active Substance: SOLIFENACIN SUCCINATE
     Indication: SUICIDE ATTEMPT
     Dosage: 9 DF IN ONE INTAKE
     Route: 048
     Dates: start: 20150114, end: 20150114
  2. NEBIVOLOL /01339102/ [Suspect]
     Active Substance: NEBIVOLOL
     Indication: SUICIDE ATTEMPT
     Dosage: 2 DF, 1 INTAKE
     Route: 048
     Dates: start: 20150114, end: 20150114
  3. ZOLPIDEM [Concomitant]
     Active Substance: ZOLPIDEM\ZOLPIDEM TARTRATE
     Indication: PRODUCT USED FOR UNKNOWN INDICATION
     Dosage: UNK UNK, UNKNOWN FREQ.
     Route: 065
  4. FLUOXETINE [Suspect]
     Active Substance: FLUOXETINE\FLUOXETINE HYDROCHLORIDE
     Indication: SUICIDE ATTEMPT
     Dosage: 10 DF, IN 1 INTAKE
     Route: 048
     Dates: start: 20150114, end: 20150114
  5. ESPERAL [Suspect]
     Active Substance: DISULFIRAM
     Indication: SUICIDE ATTEMPT
     Dosage: ONLY 1 INTAKE
     Route: 048
     Dates: start: 20150114, end: 20150114
  6. CLARADOL CODEINE [Suspect]
     Active Substance: ACETAMINOPHEN\CODEINE PHOSPHATE
     Indication: SUICIDE ATTEMPT
     Route: 048
     Dates: start: 20150114, end: 20150114
  7. LEVOTHYROX [Concomitant]
     Active Substance: LEVOTHYROXINE
     Indication: PRODUCT USED FOR UNKNOWN INDICATION
     Dosage: UNK UNK, UNKNOWN FREQ.
     Route: 065
  8. SERESTA [Concomitant]
     Active Substance: OXAZEPAM
     Indication: PRODUCT USED FOR UNKNOWN INDICATION
     Dosage: 1 DF, ONCE DAILY IN THE EVENING USUALLY
     Route: 065

REACTIONS (4)
  - Off label use [Unknown]
  - Somnolence [Recovered/Resolved]
  - Toxicity to various agents [Recovered/Resolved]
  - Hypotension [Recovered/Resolved]

NARRATIVE: CASE EVENT DATE: 20150114
